FAERS Safety Report 9497227 (Version 2)
Quarter: 2013Q4

REPORT INFORMATION
  Report Type: Spontaneous
  Country: BR (occurrence: BR)
  Receive Date: 20130904
  Receipt Date: 20131106
  Transmission Date: 20140711
  Serious: Yes (Death, Hospitalization, Other)
  Sender: FDA-Public Use
  Company Number: PHHY2013BR095854

PATIENT
  Sex: 0

DRUGS (8)
  1. TASIGNA [Suspect]
     Indication: CHRONIC MYELOID LEUKAEMIA
     Route: 048
     Dates: start: 20130811
  2. OMEPRAZOLE [Concomitant]
     Dosage: 1 DF, DAILY
  3. SIMVASTATIN [Concomitant]
     Dosage: 1 DF, DAILY
  4. ACETYLCYSTEINE [Concomitant]
     Dosage: 1 DF, DAILY
  5. ALENIA [Concomitant]
     Dosage: 2 DF, DAILY
  6. SPIRIVA [Concomitant]
     Dosage: 1 DF, DAILY
  7. ALDACTONE [Concomitant]
     Dosage: 1 DF, DAILY
  8. DUOVENT [Concomitant]

REACTIONS (7)
  - Death [Fatal]
  - Pneumonia [Recovering/Resolving]
  - Eye disorder [Unknown]
  - Speech disorder [Unknown]
  - Malaise [Unknown]
  - Dyspnoea [Unknown]
  - Pain [Unknown]
